FAERS Safety Report 6698370-7 (Version None)
Quarter: 2010Q2

REPORT INFORMATION
  Report Type: 
  Country: None (occurrence: None)
  Receive Date: 20100426
  Receipt Date: 20100426
  Transmission Date: 20101027
  Serious: Yes (Hospitalization)
  Sender: FDA-Public Use
  Company Number: None

PATIENT
  Age: 55 Year
  Sex: Male
  Weight: 99.1 kg

DRUGS (2)
  1. WARFARIN SODIUM [Suspect]
     Indication: CARDIAC VALVE DISEASE
     Dosage: 30 MG EVERY DAY PO
     Route: 048
     Dates: start: 20090421, end: 20100416
  2. WARFARIN SODIUM [Suspect]
     Indication: PROPHYLAXIS
     Dosage: 30 MG EVERY DAY PO
     Route: 048
     Dates: start: 20090421, end: 20100416

REACTIONS (3)
  - BRONCHITIS [None]
  - HAEMOPTYSIS [None]
  - INTERNATIONAL NORMALISED RATIO INCREASED [None]
